FAERS Safety Report 4549427-8 (Version None)
Quarter: 2005Q1

REPORT INFORMATION
  Report Type: 
  Country: None (occurrence: None)
  Receive Date: 20050111
  Receipt Date: 20050104
  Transmission Date: 20050727
  Serious: Yes (Life-Threatening)
  Sender: FDA-Public Use
  Company Number: 200510135GDDC

PATIENT
  Age: 83 Year
  Sex: Female

DRUGS (12)
  1. METRONIDAZOLE [Suspect]
     Indication: TOOTH ABSCESS
     Route: 048
     Dates: start: 20041213, end: 20041213
  2. CO-CODAMOL [Concomitant]
  3. NITROGLYCERIN [Concomitant]
  4. AMITRIPTYLINE [Concomitant]
  5. AMLODIPINE [Concomitant]
  6. ASPIRIN [Concomitant]
  7. ATENOLOL [Concomitant]
  8. DIAZEPAM [Concomitant]
  9. FRUSEMIDE [Concomitant]
  10. ISOSORBIDE MONONITRATE [Concomitant]
  11. PERINDOPRIL [Concomitant]
  12. SIMVASTATIN [Concomitant]

REACTIONS (1)
  - HAEMATEMESIS [None]
